FAERS Safety Report 6423542-6 (Version None)
Quarter: 2009Q4

REPORT INFORMATION
  Report Type: 
  Country: None (occurrence: None)
  Receive Date: 20091102
  Receipt Date: 20090526
  Transmission Date: 20100525
  Serious: No
  Sender: FDA-Public Use
  Company Number: A0787805A

PATIENT
  Age: 20 Year
  Sex: Male

DRUGS (1)
  1. RYTHMOL SR [Suspect]
     Indication: DRUG USE FOR UNKNOWN INDICATION
     Route: 048
     Dates: start: 20040101

REACTIONS (4)
  - CATECHOLAMINES URINE NORMAL [None]
  - LABORATORY TEST INTERFERENCE [None]
  - METANEPHRINE URINE NORMAL [None]
  - VANILLYL MANDELIC ACID URINE [None]
